FAERS Safety Report 7455309-4 (Version None)
Quarter: 2011Q2

REPORT INFORMATION
  Report Type: 
  Country: None (occurrence: None)
  Receive Date: 20110503
  Receipt Date: 20110421
  Transmission Date: 20111010
  Serious: Yes (Life-Threatening, Hospitalization, Other)
  Sender: FDA-Public Use
  Company Number: FR-BRISTOL-MYERS SQUIBB COMPANY-15703309

PATIENT
  Age: 64 Year
  Sex: Male

DRUGS (4)
  1. GLUCOPHAGE [Suspect]
     Indication: TYPE 2 DIABETES MELLITUS
     Route: 048
  2. DIAMICRON [Concomitant]
     Dosage: TABS
     Route: 048
  3. LIPANTHYL [Concomitant]
     Dosage: TABS
     Route: 048
  4. ZOPICLONE [Concomitant]
     Dosage: TABS
     Route: 048

REACTIONS (4)
  - PERITONITIS [None]
  - FALL [None]
  - LACTIC ACIDOSIS [None]
  - RENAL FAILURE ACUTE [None]
